FAERS Safety Report 9363128 (Version 2)
Quarter: 2013Q3

REPORT INFORMATION
  Report Type: Spontaneous
  Country: US (occurrence: US)
  Receive Date: 20130624
  Receipt Date: 20130819
  Transmission Date: 20140515
  Serious: Yes (Other)
  Sender: FDA-Public Use
  Company Number: US-PFIZER INC-2013187586

PATIENT
  Age: 35 Year
  Sex: Female
  Weight: 76.19 kg

DRUGS (1)
  1. CHANTIX [Suspect]
     Indication: SMOKING CESSATION THERAPY
     Dosage: UNK
     Dates: start: 20130612

REACTIONS (3)
  - Atrial fibrillation [Unknown]
  - Drug ineffective [Unknown]
  - Sleep disorder [Unknown]
